FAERS Safety Report 9164561 (Version 3)
Quarter: 2013Q3

REPORT INFORMATION
  Report Type: Spontaneous
  Country: GB (occurrence: None)
  Receive Date: 20130226
  Receipt Date: 20130901
  Transmission Date: 20140515
  Serious: Yes (Hospitalization)
  Sender: FDA-Public Use
  Company Number: SYM-2013-00851

PATIENT
  Age: 70 Year
  Sex: Male

DRUGS (4)
  1. FLUOROURACIL (FLUOROURACIL) [Suspect]
     Indication: COLORECTAL CANCER METASTATIC
     Dosage: 750 MG, EVERY CYCLE, INTRAVENOUS BOLUS
     Route: 040
     Dates: start: 20130201, end: 20130201
  2. IRINOTECAN [Suspect]
     Indication: COLORECTAL CANCER METASTATIC
     Dosage: 340 MG, EVERY CYCLE, INTRAVENOUS DRIP
     Route: 041
     Dates: start: 20130201, end: 20130201
  3. LEUCOVORIN (FOLINIC ACID) (FOLINIC ACID) [Suspect]
     Indication: COLORECTAL CANCER METASTATIC
     Route: 041
     Dates: start: 20130201, end: 20130201
  4. AFLIBERCEPT (AFLIBERCEPT) (SOLUTION FOR INFUSION) (AFLIBERCEPT) [Suspect]
     Route: 042
     Dates: start: 20130201, end: 20130201

REACTIONS (3)
  - Dyspnoea [None]
  - Lymphadenopathy [None]
  - Tumour invasion [None]
